FAERS Safety Report 18251274 (Version 2)
Quarter: 2020Q3

REPORT INFORMATION
  Report Type: Report from Study
  Country: US (occurrence: US)
  Receive Date: 20200910
  Receipt Date: 20200929
  Transmission Date: 20201103
  Serious: Yes (Hospitalization)
  Sender: FDA-Public Use
  Company Number: US-EMD SERONO-9183839

PATIENT
  Age: 40 Year
  Sex: Female

DRUGS (1)
  1. MAVENCLAD [Suspect]
     Active Substance: CLADRIBINE
     Indication: MULTIPLE SCLEROSIS
     Dates: start: 20191015

REACTIONS (3)
  - Urostomy [Unknown]
  - Hernia [Unknown]
  - Pain [Unknown]

NARRATIVE: CASE EVENT DATE: 202008
